FAERS Safety Report 25757898 (Version 2)
Quarter: 2025Q4

REPORT INFORMATION
  Report Type: Spontaneous
  Country: BR (occurrence: BR)
  Receive Date: 20250903
  Receipt Date: 20251008
  Transmission Date: 20260117
  Serious: No
  Sender: NOVARTIS
  Company Number: BR-002147023-NVSC2025BR114558

PATIENT
  Age: 42 Year
  Sex: Male
  Weight: 86 kg

DRUGS (5)
  1. INCLISIRAN [Suspect]
     Active Substance: INCLISIRAN
     Indication: Product used for unknown indication
     Dosage: UNK
     Route: 065
  2. QUETIAPINE [Suspect]
     Active Substance: QUETIAPINE
     Indication: Product used for unknown indication
     Dosage: 25 MG
     Route: 065
  3. ETORICOXIB [Concomitant]
     Active Substance: ETORICOXIB
     Indication: Product used for unknown indication
     Dosage: 90 MG
     Route: 065
  4. ACETAMINOPHEN [Concomitant]
     Active Substance: ACETAMINOPHEN
     Indication: Product used for unknown indication
     Dosage: 500 MG
     Route: 065
  5. PAROXETINE [Concomitant]
     Active Substance: PAROXETINE
     Indication: Product used for unknown indication
     Dosage: 25 MG
     Route: 065

REACTIONS (8)
  - Alanine aminotransferase increased [Unknown]
  - Aspartate aminotransferase increased [Unknown]
  - Arthralgia [Recovered/Resolved]
  - Tremor [Recovered/Resolved]
  - Pyrexia [Recovered/Resolved]
  - Blood parathyroid hormone increased [Recovering/Resolving]
  - Gamma-glutamyltransferase increased [Recovering/Resolving]
  - Serum ferritin increased [Recovering/Resolving]

NARRATIVE: CASE EVENT DATE: 20250711
